FAERS Safety Report 10035209 (Version 1)
Quarter: 2014Q1

REPORT INFORMATION
  Report Type: Spontaneous
  Country: US (occurrence: None)
  Receive Date: 20140306
  Receipt Date: 20140306
  Transmission Date: 20141002
  Serious: Yes (Hospitalization)
  Sender: FDA-Public Use
  Company Number: 163-21880-13062605

PATIENT
  Age: 84 Year
  Sex: Female

DRUGS (3)
  1. REVLIMID (LENALIDOMIDE) (10 MILLIGRAM, CAPSULES) [Suspect]
     Indication: PLASMA CELL MYELOMA
     Dosage: 10 MG, 1 IN 1 D, PO 16 MAY2013 - UNKNOWN
     Route: 048
     Dates: start: 20130516
  2. VELCADE (BORTEZOMIB) [Concomitant]
  3. DEXAMETHASONE [Concomitant]

REACTIONS (2)
  - Night sweats [None]
  - Atrial fibrillation [None]
